FAERS Safety Report 17406740 (Version 1)
Quarter: 2020Q1

REPORT INFORMATION
  Report Type: Spontaneous
  Country: US (occurrence: US)
  Receive Date: 20200128
  Receipt Date: 20200128
  Transmission Date: 20200409
  Serious: Yes (Hospitalization)
  Sender: FDA-Public Use
  Company Number: None

PATIENT
  Sex: Female

DRUGS (9)
  1. REPATHA [Suspect]
     Active Substance: EVOLOCUMAB
     Indication: HYPERCHOLESTEROLAEMIA
     Dosage: ?          OTHER FREQUENCY:Q2WKS;?
     Route: 058
     Dates: start: 20190911
  2. FAMOTIDINE. [Concomitant]
     Active Substance: FAMOTIDINE
  3. GABAPENTIN. [Concomitant]
     Active Substance: GABAPENTIN
  4. PRASUGREL. [Concomitant]
     Active Substance: PRASUGREL
  5. FLUOXETINE [Concomitant]
     Active Substance: FLUOXETINE HYDROCHLORIDE
  6. IBANDRONATE [Concomitant]
     Active Substance: IBANDRONATE SODIUM
  7. ISOSORB MONO [Concomitant]
     Active Substance: ISOSORBIDE MONONITRATE
  8. IRBESARTAN. [Concomitant]
     Active Substance: IRBESARTAN
  9. HYOSCYAMINE. [Concomitant]
     Active Substance: HYOSCYAMINE

REACTIONS (2)
  - Abdominal distension [None]
  - Pain [None]
